FAERS Safety Report 18375295 (Version 2)
Quarter: 2020Q4

REPORT INFORMATION
  Report Type: Report from Study
  Country: None (occurrence: TR)
  Receive Date: 20201012
  Receipt Date: 20201028
  Transmission Date: 20210114
  Serious: Yes (Hospitalization)
  Sender: FDA-Public Use
  Company Number: TR-ABBVIE-20K-161-3603122-00

PATIENT
  Sex: Female
  Weight: 80 kg

DRUGS (5)
  1. DUODOPA [Suspect]
     Active Substance: CARBIDOPA\LEVODOPA
     Indication: PARKINSON^S DISEASE
     Dosage: MORNING DOSE (ML): 6.00 CONTINUOUS DOSE (ML): 4.30 EXTRA DOSE (ML): 1.00
     Route: 050
     Dates: start: 20161213, end: 20200929
  2. REQUIP [Concomitant]
     Active Substance: ROPINIROLE HYDROCHLORIDE
     Indication: PARKINSON^S DISEASE
     Route: 048
  3. CEDRINA XR [Concomitant]
     Indication: PARKINSON^S DISEASE
     Route: 048
  4. DOPALEVO [Concomitant]
     Active Substance: CARBIDOPA\ENTACAPONE\LEVODOPA
     Indication: PARKINSON^S DISEASE
     Route: 048
  5. DUODOPA [Suspect]
     Active Substance: CARBIDOPA\LEVODOPA
     Dosage: MORNING DOSE (ML): 6.00, CONTINUOUS DOSE (ML): 4.30, EXTRA DOSE (ML): 1.00.
     Route: 050
     Dates: start: 20201016

REACTIONS (2)
  - Abnormal behaviour [Recovering/Resolving]
  - Psychotic disorder [Recovering/Resolving]
